FAERS Safety Report 6433444-7 (Version None)
Quarter: 2009Q4

REPORT INFORMATION
  Report Type: 
  Country: None (occurrence: None)
  Receive Date: 20091106
  Receipt Date: 20091106
  Transmission Date: 20100525
  Serious: Yes (Life-Threatening, Hospitalization, Other)
  Sender: FDA-Public Use
  Company Number: None

PATIENT
  Age: 27 Year
  Sex: Female
  Weight: 54.4316 kg

DRUGS (5)
  1. NUVARING [Suspect]
     Indication: MENSTRUAL DISORDER
     Dosage: 1 STANDARD RING EVERY FOUR WEEKS VAG
     Route: 067
     Dates: start: 20090201
  2. CIMZIA [Concomitant]
  3. PENTASA [Concomitant]
  4. FLAGYL [Concomitant]
  5. PREDNISONE [Concomitant]

REACTIONS (3)
  - CONDITION AGGRAVATED [None]
  - CROHN'S DISEASE [None]
  - THROMBOSIS [None]
